FAERS Safety Report 15582371 (Version 7)
Quarter: 2019Q2

REPORT INFORMATION
  Report Type: Report from Study
  Country: NO (occurrence: NO)
  Receive Date: 20181102
  Receipt Date: 20190429
  Transmission Date: 20190711
  Serious: Yes (Death, Life-Threatening, Hospitalization)
  Sender: FDA-Public Use
  Company Number: NO-AMGEN-NORNI2018153675

PATIENT
  Age: 73 Year
  Weight: 57 kg

DRUGS (31)
  1. DEXAMETHASONE. [Suspect]
     Active Substance: DEXAMETHASONE
     Indication: PLASMA CELL MYELOMA
     Dosage: 20 MILLIGRAM
     Route: 065
     Dates: start: 20180910
  2. VALTREX [Concomitant]
     Active Substance: VALACYCLOVIR HYDROCHLORIDE
     Dosage: 250 MILLIGRAM
  3. SOLU-CORTEF [Concomitant]
     Active Substance: HYDROCORTISONE SODIUM SUCCINATE
     Dosage: 250 MILLIGRAM
  4. ACICLOVIR [Concomitant]
     Active Substance: ACYCLOVIR
     Indication: CLOSTRIDIUM DIFFICILE INFECTION
     Dosage: 250 MILLIGRAM
     Route: 042
  5. VANCOMYCIN ACTAVIS [Concomitant]
     Active Substance: VANCOMYCIN
     Indication: CLOSTRIDIUM DIFFICILE INFECTION
     Dosage: 125 MILLIGRAM
  6. FLAGYL [Concomitant]
     Active Substance: METRONIDAZOLE\METRONIDAZOLE HYDROCHLORIDE
     Dosage: 400 MILLIGRAM
     Dates: start: 20181014, end: 20181018
  7. MEROPENEM. [Concomitant]
     Active Substance: MEROPENEM
     Indication: CLOSTRIDIUM DIFFICILE INFECTION
     Dosage: 1 GRAM
     Route: 042
     Dates: start: 20181017, end: 20181025
  8. ALBYL-E [Concomitant]
     Active Substance: ASPIRIN\MAGNESIUM OXIDE
     Dosage: 75 MILLIGRAM
  9. SIMVASTATIN SANDOZ [Concomitant]
     Active Substance: SIMVASTATIN
     Dosage: 40 MILLIGRAM
  10. ALLOPURINOL. [Concomitant]
     Active Substance: ALLOPURINOL
     Dosage: 300 MILLIGRAM
  11. IMOVANE [Concomitant]
     Active Substance: ZOPICLONE
     Dosage: 7.5 MILLIGRAM
  12. PANODIL [Concomitant]
     Active Substance: ACETAMINOPHEN
     Dosage: 1 GRAM, AS NEEDED AND 500 MILLIGRAM 1-2 TIMES A DAY
  13. ECALTA [Suspect]
     Active Substance: ANIDULAFUNGIN
     Indication: PRODUCT USED FOR UNKNOWN INDICATION
     Dosage: 200 MILLIGRAM
     Route: 042
     Dates: start: 20181018
  14. DEXAMETHASON [Concomitant]
     Active Substance: DEXAMETHASONE
     Dosage: 4 MILLIGRAM
  15. NACL [Concomitant]
     Active Substance: SODIUM CHLORIDE
     Dosage: 1000 MILLILITER
  16. STESOLID [Concomitant]
     Active Substance: DIAZEPAM
     Dosage: 2.5 MILLIGRAM
  17. PABRINEX [Concomitant]
     Active Substance: ASCORBIC ACID\VITAMIN B COMPLEX
     Dosage: UNK
  18. FLUCONAZOL [Concomitant]
     Active Substance: FLUCONAZOLE
     Dosage: 100 MILLIGRAM
     Dates: start: 20181004, end: 20181018
  19. SOMAC [Concomitant]
     Active Substance: PANTOPRAZOLE SODIUM
     Dosage: 40 MILLIGRAM
  20. CARFILZOMIB [Suspect]
     Active Substance: CARFILZOMIB
     Indication: PLASMA CELL MYELOMA
     Dosage: 30 MILLIGRAM
     Route: 042
     Dates: start: 20180910
  21. NEUPOGEN [Concomitant]
     Active Substance: FILGRASTIM
     Dosage: 0.3 MILLIGRAM
  22. NEXIUM [Concomitant]
     Active Substance: ESOMEPRAZOLE MAGNESIUM
     Dosage: 40 MILLIGRAM
     Dates: start: 20181002, end: 20181018
  23. RINGER-ACETAT [Concomitant]
     Dosage: 1000 MILLILITER
  24. METOPROLOL SANDOZ [Concomitant]
     Active Substance: METOPROLOL
     Dosage: 50 MILLIGRAM
  25. DEKSKLORFENIRAMIN [Concomitant]
     Dosage: 5 MILLIGRAM
  26. CALOGEN [Concomitant]
     Dosage: UNK
  27. DIFLUCAN [Concomitant]
     Active Substance: FLUCONAZOLE
     Dosage: 100 MILLIGRAM
  28. CARFILZOMIB [Suspect]
     Active Substance: CARFILZOMIB
     Dosage: 90 MILLIGRAM
     Route: 042
  29. IMDUR [Concomitant]
     Active Substance: ISOSORBIDE MONONITRATE
     Dosage: 30 UNK
  30. IMODIUM [Concomitant]
     Active Substance: LOPERAMIDE HYDROCHLORIDE
     Dosage: UNK
  31. AFIPRAN [Concomitant]
     Active Substance: METOCLOPRAMIDE HYDROCHLORIDE
     Dosage: 10 MILLIGRAM

REACTIONS (3)
  - Hepatic failure [Fatal]
  - Escherichia sepsis [Recovered/Resolved]
  - Clostridium difficile infection [Recovered/Resolved]

NARRATIVE: CASE EVENT DATE: 20181014
